FAERS Safety Report 14638089 (Version 1)
Quarter: 2018Q1

REPORT INFORMATION
  Report Type: Spontaneous
  Country: US (occurrence: US)
  Receive Date: 20180314
  Receipt Date: 20180314
  Transmission Date: 20180509
  Serious: Yes (Other)
  Sender: FDA-Public Use
  Company Number: None

PATIENT
  Age: 48 Year
  Sex: Female
  Weight: 99 kg

DRUGS (1)
  1. LISNOPRIL 15 MG [Suspect]
     Active Substance: LISINOPRIL
     Indication: HYPERTENSION
     Dosage: ?          QUANTITY:90 TABLET(S);?
     Route: 048

REACTIONS (5)
  - Pharyngeal oedema [None]
  - Swollen tongue [None]
  - Aphonia [None]
  - Cough [None]
  - Muscle spasms [None]

NARRATIVE: CASE EVENT DATE: 20180301
